FAERS Safety Report 8975621 (Version 1)
Quarter: 2012Q4

REPORT INFORMATION
  Report Type: 
  Country: BR (occurrence: BR)
  Receive Date: 20121219
  Receipt Date: 20121219
  Transmission Date: 20130627
  Serious: Yes (Other)
  Sender: FDA-Public Use
  Company Number: BR-PFIZER INC-2012319764

PATIENT
  Age: 88 Year
  Sex: Female

DRUGS (6)
  1. LIPITOR [Suspect]
     Indication: BLOOD DISORDER
     Dosage: 20 mg tablet
     Route: 048
     Dates: start: 2009
  2. LIPITOR [Suspect]
     Dosage: 20 mg, 1x/day
     Route: 048
     Dates: start: 2009
  3. ASPIRIN [Concomitant]
     Indication: BLOOD DISORDER
     Dosage: 100 mg, 1x/day
     Dates: start: 2009
  4. LOSARTAN [Concomitant]
     Indication: BLOOD PRESSURE
     Dosage: 50 mg, 1x/day
     Dates: start: 2009
  5. MONOCORDIL [Concomitant]
     Indication: HEART DISORDER
     Dosage: 2 tablets (20 mg) a day
     Dates: start: 2009
  6. OMEPRAZOL [Concomitant]
     Indication: ABDOMINAL DISORDER
     Dosage: 1 tablet (20 mg) when fasting (unspecified frequency)
     Dates: start: 2009

REACTIONS (2)
  - Cardiac pacemaker insertion [Unknown]
  - Venous occlusion [Unknown]
